FAERS Safety Report 7879017-0 (Version None)
Quarter: 2011Q4

REPORT INFORMATION
  Report Type: 
  Country: None (occurrence: None)
  Receive Date: 20111101
  Receipt Date: 20111025
  Transmission Date: 20120403
  Serious: Yes (Hospitalization)
  Sender: FDA-Public Use
  Company Number: PHEH2011US04023

PATIENT
  Sex: Female
  Weight: 53.6 kg

DRUGS (8)
  1. Q10 VITAMINS [Concomitant]
     Dosage: UNK UKN, UNK
  2. LIPITOR [Concomitant]
  3. HYDROCHLORIC ACID [Concomitant]
     Dosage: UNK UKN, UNK
  4. CALCIUM [Concomitant]
     Dosage: UNK UKN, UNK
  5. LOPRESSOR [Concomitant]
     Dosage: UNK UKN, UNK
  6. FOLIC ACID [Concomitant]
     Dosage: UNK UKN, UNK
  7. RECLAST [Suspect]
     Dosage: UNK UKN, UNK
     Route: 042
     Dates: start: 20110803
  8. LOVAZA [Concomitant]
     Dosage: UNK UKN, UNK

REACTIONS (5)
  - HYPOAESTHESIA ORAL [None]
  - HYPOAESTHESIA [None]
  - HEADACHE [None]
  - PYREXIA [None]
  - DISORIENTATION [None]
